FAERS Safety Report 8415741-9 (Version None)
Quarter: 2012Q2

REPORT INFORMATION
  Report Type: 
  Country: None (occurrence: None)
  Receive Date: 20120606
  Receipt Date: 20120522
  Transmission Date: 20120825
  Serious: Yes (Other)
  Sender: FDA-Public Use
  Company Number: JP-ASTELLAS-2011JP001434

PATIENT
  Sex: Female
  Weight: 51 kg

DRUGS (13)
  1. TACROLIMUS [Suspect]
     Dosage: 3 MG, UNKNOWN/D
     Route: 048
     Dates: start: 20090317, end: 20090525
  2. PREDNISOLONE [Concomitant]
     Dosage: 7.5 MG, UNKNOWN/D
     Route: 048
     Dates: start: 20090210, end: 20090525
  3. PREDNISOLONE [Concomitant]
     Dosage: 10 MG, UNKNOWN/D
     Route: 048
     Dates: start: 20090526
  4. FAMOTIDINE [Concomitant]
     Dosage: UNK
     Route: 048
     Dates: end: 20090525
  5. FAMOTIDINE [Concomitant]
     Dosage: UNK
     Route: 048
     Dates: start: 20091124
  6. TACROLIMUS [Suspect]
     Dosage: 3 MG, UNKNOWN/D
     Route: 048
     Dates: start: 20091124, end: 20110503
  7. PREDNISOLONE [Concomitant]
     Dosage: 12.5 MG, UNKNOWN/D
     Route: 048
     Dates: start: 20080723, end: 20081027
  8. METHYLPREDNISOLONE [Concomitant]
     Dosage: 250 MG, UNKNOWN/D
     Route: 065
     Dates: start: 20091125, end: 20091126
  9. RISEDRONATE SODIUM [Concomitant]
     Dosage: UNK
     Route: 048
     Dates: end: 20090413
  10. TACROLIMUS [Suspect]
     Indication: LUPUS NEPHRITIS
     Dosage: 1.5 MG, UNKNOWN/D
     Route: 048
     Dates: start: 20080304, end: 20090316
  11. PREDNISOLONE [Concomitant]
     Indication: LUPUS NEPHRITIS
     Dosage: 15 MG, UNKNOWN/D
     Route: 048
     Dates: end: 20080722
  12. PREDNISOLONE [Concomitant]
     Dosage: 10 MG, UNKNOWN/D
     Route: 048
     Dates: start: 20081028, end: 20090209
  13. METHYLPREDNISOLONE [Concomitant]
     Indication: LUPUS NEPHRITIS
     Dosage: 500 MG, UNKNOWN/D
     Route: 065
     Dates: start: 20091124, end: 20091124

REACTIONS (2)
  - ECTOPIC PREGNANCY [None]
  - MATERNAL EXPOSURE DURING PREGNANCY [None]
